FAERS Safety Report 8791324 (Version 1)
Quarter: 2012Q4

REPORT INFORMATION
  Report Type: Spontaneous
  Country: US (occurrence: None)
  Receive Date: 20120914
  Receipt Date: 20120914
  Transmission Date: 20130627
  Serious: No
  Sender: FDA-Public Use
  Company Number: None

PATIENT
  Sex: Male
  Weight: 94.3 kg

DRUGS (1)
  1. CETUXIMAB [Suspect]
     Dosage: pt had completed Cetuximab prior to SAE.

REACTIONS (4)
  - Dysphagia [None]
  - Electrolyte imbalance [None]
  - Vomiting [None]
  - Pyrexia [None]
